FAERS Safety Report 8321615-4 (Version None)
Quarter: 2012Q2

REPORT INFORMATION
  Report Type: 
  Country: None (occurrence: None)
  Receive Date: 20120430
  Receipt Date: 20120417
  Transmission Date: 20120825
  Serious: Yes (Other)
  Sender: FDA-Public Use
  Company Number: FR-NOVOPROD-348218

PATIENT
  Age: 66 Year
  Sex: Male
  Weight: 86 kg

DRUGS (6)
  1. LEVEMIR [Suspect]
     Indication: TYPE 2 DIABETES MELLITUS
     Dosage: 24 IU, QD
     Route: 058
     Dates: start: 20111125
  2. NOVORAPID [Concomitant]
     Indication: DIABETES MELLITUS
     Dosage: UNK
     Route: 058
     Dates: start: 20111125
  3. AMLODIPINE BESYLATE [Concomitant]
     Indication: HYPERTENSION
     Dosage: UNK
     Dates: start: 20070101
  4. ASPIRIN [Concomitant]
     Indication: STENT PLACEMENT
     Dosage: UNK
     Dates: start: 20111125
  5. IRBESARTAN [Concomitant]
     Dosage: 150 MG, QD
     Route: 048
     Dates: start: 20040101
  6. PLAVIX [Concomitant]
     Indication: STENT PLACEMENT
     Dosage: UNK
     Dates: start: 20111125

REACTIONS (5)
  - PRURITUS GENERALISED [None]
  - ERYTHEMA [None]
  - OEDEMA PERIPHERAL [None]
  - ARTHRALGIA [None]
  - ASTHENIA [None]
